FAERS Safety Report 8425081-X (Version None)
Quarter: 2012Q2

REPORT INFORMATION
  Report Type: 
  Country: None (occurrence: None)
  Receive Date: 20120611
  Receipt Date: 20120601
  Transmission Date: 20120825
  Serious: Yes (Hospitalization, Other)
  Sender: FDA-Public Use
  Company Number: US-BAYER-2011-027213

PATIENT
  Age: 39 Year
  Sex: Female

DRUGS (8)
  1. CITALOPRAM HYDROBROMIDE [Concomitant]
     Dosage: 40 MG, QD
     Route: 048
     Dates: start: 20080624, end: 20080911
  2. HYDROCODONE [Concomitant]
     Indication: PAIN
  3. CYCLOBENZAPRINE [Concomitant]
     Dosage: 10 MG, UPTO THREE TIMES A DAY
     Route: 048
     Dates: start: 20080619
  4. MS CONTIN [Concomitant]
     Indication: PAIN
  5. VICODIN [Concomitant]
     Indication: PAIN
  6. DIAZEPAM [Concomitant]
     Dosage: 5 MG, 1 TABLET AT NIGHT
     Route: 048
     Dates: start: 20080619
  7. YAZ [Suspect]
     Indication: PREMENSTRUAL SYNDROME
     Dosage: UNK
     Dates: start: 20080101, end: 20090901
  8. COLACE [Concomitant]

REACTIONS (8)
  - PULMONARY EMBOLISM [None]
  - GENERAL PHYSICAL HEALTH DETERIORATION [None]
  - PAIN [None]
  - DEEP VEIN THROMBOSIS [None]
  - INJURY [None]
  - ANHEDONIA [None]
  - EMOTIONAL DISTRESS [None]
  - ANXIETY [None]
